FAERS Safety Report 9658004 (Version 2)
Quarter: 2013Q4

REPORT INFORMATION
  Report Type: Spontaneous
  Country: US (occurrence: US)
  Receive Date: 20131030
  Receipt Date: 20131203
  Transmission Date: 20140711
  Serious: No
  Sender: FDA-Public Use
  Company Number: US-009507513-1310USA001662

PATIENT
  Sex: 0

DRUGS (1)
  1. TICE BCG LIVE [Suspect]
     Indication: PROPHYLAXIS
     Dosage: UNK
     Dates: start: 201310, end: 201310

REACTIONS (3)
  - Drug dose omission [Unknown]
  - Intercepted medication error [Unknown]
  - No adverse event [Unknown]
